FAERS Safety Report 11280225 (Version 1)
Quarter: 2015Q3

REPORT INFORMATION
  Report Type: Spontaneous
  Country: US (occurrence: US)
  Receive Date: 20150717
  Receipt Date: 20150717
  Transmission Date: 20151125
  Serious: Yes (Other)
  Sender: FDA-Public Use
  Company Number: US-JNJFOC-20131217100

PATIENT
  Age: 51 Year
  Sex: Female

DRUGS (2)
  1. CLADRIBINE. [Suspect]
     Active Substance: CLADRIBINE
     Indication: HAIRY CELL LEUKAEMIA
     Dosage: 1 TO 5 DAYS
     Route: 042
  2. RITUXIMAB [Suspect]
     Active Substance: RITUXIMAB
     Indication: HAIRY CELL LEUKAEMIA
     Dosage: FOR 8 WEEKS
     Route: 065

REACTIONS (15)
  - Vomiting [Unknown]
  - Lymphopenia [Unknown]
  - Pruritus [Unknown]
  - Incorrect dose administered [Unknown]
  - Headache [Unknown]
  - Hypotension [Unknown]
  - Aspartate aminotransferase abnormal [Unknown]
  - Hypoalbuminaemia [Unknown]
  - Haematuria [Unknown]
  - Rash [Unknown]
  - Leukopenia [Unknown]
  - Thrombocytopenia [Unknown]
  - Arthralgia [Unknown]
  - Chills [Unknown]
  - Nausea [Unknown]
